FAERS Safety Report 5906035-1 (Version None)
Quarter: 2008Q4

REPORT INFORMATION
  Report Type: 
  Country: None (occurrence: None)
  Receive Date: 20081002
  Receipt Date: 20080805
  Transmission Date: 20090506
  Serious: Yes (Hospitalization)
  Sender: FDA-Public Use
  Company Number: JP-WYE-H04413608

PATIENT
  Age: 73 Year
  Sex: Male

DRUGS (1)
  1. CEFSPAN [Suspect]
     Dosage: UNKNOWN
     Route: 048
     Dates: start: 20080502

REACTIONS (1)
  - TUBULOINTERSTITIAL NEPHRITIS [None]
